FAERS Safety Report 4549527-2 (Version None)
Quarter: 2005Q1

REPORT INFORMATION
  Report Type: 
  Country: None (occurrence: None)
  Receive Date: 20050111
  Receipt Date: 20041104
  Transmission Date: 20050727
  Serious: Yes (Hospitalization)
  Sender: FDA-Public Use
  Company Number: US-ROCHE-385608

PATIENT
  Age: 68 Year
  Sex: Female
  Weight: 60.3 kg

DRUGS (3)
  1. XELODA [Suspect]
     Route: 048
     Dates: end: 20041010
  2. FOSAMAX [Concomitant]
     Indication: OSTEOPOROSIS
     Route: 048
  3. COMBIVENT [Concomitant]
     Route: 055
     Dates: start: 20040915

REACTIONS (2)
  - PLEURAL EFFUSION [None]
  - PULMONARY OEDEMA [None]
